FAERS Safety Report 7200144-5 (Version None)
Quarter: 2010Q4

REPORT INFORMATION
  Report Type: 
  Country: None (occurrence: None)
  Receive Date: 20101228
  Receipt Date: 20101221
  Transmission Date: 20110411
  Serious: Yes (Life-Threatening, Hospitalization, Other)
  Sender: FDA-Public Use
  Company Number: JP-JNJFOC-20091106613

PATIENT
  Sex: Female

DRUGS (6)
  1. CONCERTA [Suspect]
     Indication: SUICIDE ATTEMPT
     Route: 048
     Dates: start: 20080305
  2. CONCERTA [Suspect]
     Route: 048
     Dates: start: 20080305
  3. CONCERTA [Suspect]
     Indication: ATTENTION DEFICIT/HYPERACTIVITY DISORDER
     Route: 048
     Dates: start: 20080305
  4. CONCERTA [Suspect]
     Route: 048
     Dates: start: 20080305
  5. LOXONIN [Concomitant]
     Indication: SUICIDE ATTEMPT
     Route: 048
  6. MAGNESIUM OXIDE [Concomitant]
     Indication: SUICIDE ATTEMPT
     Route: 048

REACTIONS (13)
  - BLOOD PRESSURE DECREASED [None]
  - DIZZINESS [None]
  - INSOMNIA [None]
  - MALAISE [None]
  - NAUSEA [None]
  - OVERDOSE [None]
  - PALPITATIONS [None]
  - SENSATION OF HEAVINESS [None]
  - SINUS ARRHYTHMIA [None]
  - SUICIDE ATTEMPT [None]
  - TACHYCARDIA [None]
  - TREATMENT NONCOMPLIANCE [None]
  - TREMOR [None]
